FAERS Safety Report 20751526 (Version 1)
Quarter: 2022Q2

REPORT INFORMATION
  Report Type: Spontaneous
  Country: US (occurrence: US)
  Receive Date: 20220426
  Receipt Date: 20220426
  Transmission Date: 20220721
  Serious: No
  Sender: FDA-Public Use
  Company Number: US-MYLANLABS-2022M1027226

PATIENT

DRUGS (1)
  1. ESTRADIOL TRANSDERMAL SYSTEM [Suspect]
     Active Substance: ESTRADIOL
     Indication: Product used for unknown indication
     Dosage: 0.0375 MILLIGRAM, QD (WEEKLY)
     Route: 062

REACTIONS (3)
  - Nipple disorder [Recovered/Resolved]
  - Breast swelling [Recovered/Resolved]
  - Breast tenderness [Recovered/Resolved]
